FAERS Safety Report 20723223 (Version 1)
Quarter: 2022Q2

REPORT INFORMATION
  Report Type: Spontaneous
  Country: US (occurrence: US)
  Receive Date: 20220419
  Receipt Date: 20220419
  Transmission Date: 20220721
  Serious: No
  Sender: FDA-Public Use
  Company Number: US-ORGANON-O2204USA001127

PATIENT
  Age: 68 Year
  Sex: Female
  Weight: 60.771 kg

DRUGS (3)
  1. MAXALT [Suspect]
     Active Substance: RIZATRIPTAN BENZOATE
     Indication: Migraine
     Dosage: UNK
     Route: 048
  2. IMITREX [Suspect]
     Active Substance: SUMATRIPTAN SUCCINATE
     Dosage: UNK
  3. NURTEC ODT [Concomitant]
     Active Substance: RIMEGEPANT SULFATE
     Dosage: UNK

REACTIONS (4)
  - Cognitive disorder [Unknown]
  - Drug ineffective [Unknown]
  - Feeling abnormal [Unknown]
  - Product availability issue [Unknown]
